FAERS Safety Report 8927402 (Version 2)
Quarter: 2012Q4

REPORT INFORMATION
  Report Type: Report from Study
  Country: JP (occurrence: JP)
  Receive Date: 20121127
  Receipt Date: 20121231
  Transmission Date: 20130627
  Serious: Yes (Hospitalization, Other)
  Sender: FDA-Public Use
  Company Number: JP-VERTEX PHARMACEUTICAL INC.-2012-025072

PATIENT
  Age: 48 Year
  Sex: Male

DRUGS (25)
  1. VX-950 (TELAPREVIR) [Suspect]
     Indication: CHRONIC HEPATITIS C
     Dosage: 1500 mg, qd
     Route: 048
     Dates: start: 20120907, end: 20121123
  2. RIBAVIRIN [Suspect]
     Indication: CHRONIC HEPATITIS C
     Dosage: 800 mg, qd
     Route: 048
     Dates: start: 20120907, end: 20120927
  3. RIBAVIRIN [Suspect]
     Dosage: 600 mg, qd
     Route: 048
     Dates: start: 20120928, end: 20121108
  4. RIBAVIRIN [Suspect]
     Dosage: 400 mg, qd
     Route: 048
     Dates: start: 20121109, end: 20121123
  5. PEGINTERFERON ALFA-2B [Suspect]
     Indication: CHRONIC HEPATITIS C
     Dosage: 1.45 ?g/kg, qw
     Route: 058
     Dates: start: 20120907, end: 20121123
  6. LOXOPROFEN [Concomitant]
     Dosage: 60 mg, qd
     Route: 048
     Dates: start: 20120907, end: 20121004
  7. LOXOPROFEN [Concomitant]
     Dosage: 60 mg, prn
     Route: 048
     Dates: start: 20121129
  8. GASTER [Concomitant]
     Dosage: 40 mg, qd
     Route: 048
     Dates: start: 20120914, end: 20121004
  9. MAALOX                             /00082501/ [Concomitant]
     Dosage: 3.6 g, qd
     Route: 048
     Dates: start: 20120928, end: 20121123
  10. LASIX                              /00032601/ [Concomitant]
     Dosage: 40 mg, qd
     Route: 048
     Dates: start: 20121003, end: 20121018
  11. ALDACTONE A [Concomitant]
     Dosage: 25 mg, qd
     Route: 048
     Dates: start: 20121003, end: 20121018
  12. PARIET [Concomitant]
     Dosage: 10 mg, qd
     Route: 048
     Dates: start: 20121005, end: 20121123
  13. PREDONINE                          /00016201/ [Concomitant]
     Dosage: 5 mg, qd
     Route: 048
     Dates: start: 20121019
  14. MUCOSTA [Concomitant]
     Dosage: 300 mg, qd
     Route: 048
     Dates: end: 20121004
  15. AMARYL [Concomitant]
     Dosage: 0.5 mg, qd
     Route: 048
  16. METGLUCO [Concomitant]
     Dosage: 1000 mg, qd
     Route: 048
  17. JANUVIA [Concomitant]
     Dosage: 50 mg, qd
     Route: 048
  18. ZYLORIC [Concomitant]
     Dosage: 200 mg, qd
     Route: 048
     Dates: start: 20120907, end: 20121108
  19. ZYLORIC [Concomitant]
     Dosage: 100 mg, qd
     Route: 048
     Dates: start: 20121109
  20. ALLOID G [Concomitant]
     Dosage: 60 ml, qd
     Route: 048
     Dates: start: 20121127
  21. BESOFTEN SPRAY [Concomitant]
     Dosage: UNK, prn
     Route: 051
     Dates: start: 20121109
  22. ALLELOCK [Concomitant]
     Dosage: 10 mg, qd
     Route: 048
     Dates: start: 20121109, end: 20121129
  23. POLARAMINE [Concomitant]
     Dosage: 4 mg, qd
     Route: 048
     Dates: start: 20121116, end: 20121129
  24. OMEPRAL /00661201/ [Concomitant]
     Dosage: 20 mg, qd
     Route: 042
     Dates: start: 20121123, end: 20121127
  25. ATARAX-P                           /00058402/ [Concomitant]
     Dosage: 25 mg/ 1 ml
     Route: 042
     Dates: start: 20121123, end: 20121126

REACTIONS (4)
  - Upper gastrointestinal haemorrhage [Recovered/Resolved]
  - Gastrointestinal haemorrhage [Recovered/Resolved]
  - Erythema multiforme [Recovered/Resolved]
  - Haemoglobin decreased [Not Recovered/Not Resolved]
